FAERS Safety Report 7296614-4 (Version None)
Quarter: 2011Q1

REPORT INFORMATION
  Report Type: 
  Country: None (occurrence: None)
  Receive Date: 20110204
  Receipt Date: 20110128
  Transmission Date: 20110831
  Serious: Yes (Other)
  Sender: FDA-Public Use
  Company Number: 2011016063

PATIENT
  Age: 79 Year
  Sex: Female

DRUGS (3)
  1. ASPIRIN [Suspect]
     Dosage: 100 MG, 1X/DAY, ORAL
     Route: 048
     Dates: start: 20110112
  2. CLOPIDOGREL [Suspect]
     Dosage: 50 MG, 1X/DAY, ORAL
     Route: 048
     Dates: start: 20110112
  3. FRAGMIN [Suspect]
     Indication: ANGINA PECTORIS
     Dosage: 5000 IU, 2X/DAY, SUBCUTANEOUS
     Route: 058
     Dates: start: 20110113, end: 20110120

REACTIONS (13)
  - ABDOMINAL WALL HAEMATOMA [None]
  - VERTIGO [None]
  - FIBRIN D DIMER NORMAL [None]
  - INTERNATIONAL NORMALISED RATIO DECREASED [None]
  - PNEUMATOSIS [None]
  - HAEMATOCHEZIA [None]
  - ACTIVATED PARTIAL THROMBOPLASTIN TIME PROLONGED [None]
  - THROMBIN TIME PROLONGED [None]
  - COAGULOPATHY [None]
  - FAECALOMA [None]
  - ABDOMINAL DISTENSION [None]
  - GASTROINTESTINAL PAIN [None]
  - PROTHROMBIN TIME PROLONGED [None]
